FAERS Safety Report 9896158 (Version 1)
Quarter: 2014Q1

REPORT INFORMATION
  Report Type: Spontaneous
  Country: US (occurrence: US)
  Receive Date: 20140213
  Receipt Date: 20140213
  Transmission Date: 20141002
  Serious: No
  Sender: FDA-Public Use
  Company Number: US-BRISTOL-MYERS SQUIBB COMPANY-17316597

PATIENT
  Age: 53 Year
  Sex: Female
  Weight: 54.42 kg

DRUGS (9)
  1. ORENCIA [Suspect]
     Indication: RHEUMATOID ARTHRITIS
     Route: 058
     Dates: start: 201206, end: 201301
  2. CELEBREX [Concomitant]
  3. ATIVAN [Concomitant]
  4. PLAQUENIL [Concomitant]
  5. ZYRTEC [Concomitant]
  6. LIPITOR [Concomitant]
  7. FLONASE [Concomitant]
  8. ACETYLSALICYLIC ACID [Concomitant]
  9. BYSTOLIC [Concomitant]

REACTIONS (1)
  - Drug ineffective [Not Recovered/Not Resolved]
